FAERS Safety Report 4297971-3 (Version None)
Quarter: 2004Q1

REPORT INFORMATION
  Report Type: 
  Country: None (occurrence: None)
  Receive Date: 20040218
  Receipt Date: 20001222
  Transmission Date: 20041129
  Serious: Yes (Other)
  Sender: FDA-Public Use
  Company Number: US-BRISTOL-MYERS SQUIBB COMPANY-10660280

PATIENT
  Age: 30 Year
  Sex: Female

DRUGS (5)
  1. STADOL [Suspect]
     Indication: MIGRAINE
     Route: 045
     Dates: start: 19940101, end: 19990101
  2. STADOL [Suspect]
     Indication: FLANK PAIN
  3. STADOL [Suspect]
     Indication: HAEMATURIA
  4. STADOL [Suspect]
     Indication: URINARY TRACT INFECTION
  5. ETOH [Suspect]

REACTIONS (5)
  - BORDERLINE PERSONALITY DISORDER [None]
  - DEPENDENCE [None]
  - DRUG ADDICT [None]
  - DRUG WITHDRAWAL SYNDROME [None]
  - PERSONALITY DISORDER [None]
